FAERS Safety Report 7130611-4 (Version None)
Quarter: 2010Q4

REPORT INFORMATION
  Report Type: 
  Country: None (occurrence: None)
  Receive Date: 20101201
  Receipt Date: 20101122
  Transmission Date: 20110411
  Serious: Yes (Other)
  Sender: FDA-Public Use
  Company Number: US-AMGEN-QUU347754

PATIENT

DRUGS (17)
  1. ENBREL [Suspect]
     Indication: PSORIATIC ARTHROPATHY
     Dosage: 50 MG, QWK
     Route: 058
     Dates: start: 20051228, end: 20101101
  2. ENBREL [Suspect]
     Indication: PSORIASIS
  3. LEVOTHYROXINE SODIUM [Concomitant]
     Dosage: 100 A?G, QD
     Dates: start: 19990101
  4. SIMVASTATIN [Concomitant]
     Dosage: 20 MG, QD
     Dates: start: 19990101
  5. ESOMEPRAZOLE MAGNESIUM [Concomitant]
     Dosage: 40 MG, QD
     Dates: start: 19950101
  6. TAMOXIFEN [Concomitant]
     Dosage: 20 MG, QD
     Dates: start: 20080401
  7. ENZYMES [Concomitant]
     Dosage: UNK UNK, TID
  8. CALCIUM WITH VITAMIN D [Concomitant]
     Dosage: UNK UNK, QD
  9. MULTI-VITAMINS [Concomitant]
     Dosage: UNK UNK, QD
  10. DIPHENHYDRAMINE HYDROCHLORIDE [Concomitant]
     Dosage: 25 MG, PRN
  11. ALENDRONATE SODIUM [Concomitant]
     Dosage: UNK UNK, QWK
  12. FISH OIL [Concomitant]
     Dosage: UNK UNK, QD
  13. FLAX SEED OIL [Concomitant]
     Dosage: UNK UNK, QD
  14. COENZYME Q10 [Concomitant]
     Dosage: 50 MG, QD
  15. CHROMIUM CHLORIDE [Concomitant]
     Dosage: UNK UNK, QD
  16. BIOTIN [Concomitant]
     Dosage: UNK UNK, QD
  17. UNSPECIFIED MEDICATION [Concomitant]
     Dosage: UNK UNK, QD

REACTIONS (2)
  - BREAST CANCER [None]
  - BREAST MASS [None]
